FAERS Safety Report 17169557 (Version 2)
Quarter: 2020Q2

REPORT INFORMATION
  Report Type: Spontaneous
  Country: BE (occurrence: BE)
  Receive Date: 20191218
  Receipt Date: 20200515
  Transmission Date: 20200713
  Serious: Yes (Hospitalization, Other)
  Sender: FDA-Public Use
  Company Number: NVSC2019BE066498

PATIENT
  Age: 52 Year
  Sex: Female

DRUGS (13)
  1. TEGRETOL [Suspect]
     Active Substance: CARBAMAZEPINE
     Indication: FACIAL PAIN
     Dosage: 1 DF, QID (1 CO MORNING, 1 CO AFTERNOON AND 2 CO AT NIGHT)
     Route: 065
  2. DIPIDOLOR [Suspect]
     Active Substance: PIRITRAMIDE
     Indication: FACIAL PAIN
     Dosage: UNK
     Route: 065
  3. AMLOR [Concomitant]
     Active Substance: AMLODIPINE BESYLATE
     Indication: PRODUCT USED FOR UNKNOWN INDICATION
     Dosage: UNK UNK, PRN (IF NEEDED WITH HIGH RR)
     Route: 065
  4. TRADONAL [Concomitant]
     Active Substance: TRAMADOL HYDROCHLORIDE
     Indication: PRODUCT USED FOR UNKNOWN INDICATION
     Dosage: 1 DF (TO BE TAKEN EXTRA IF NEEDED   )
     Route: 065
  5. CONTRAMAL [Suspect]
     Active Substance: TRAMADOL HYDROCHLORIDE
     Indication: FACIAL PAIN
     Dosage: UNK UNK, QD (3X30DR PER DAY)
     Route: 065
  6. ZOCOR [Concomitant]
     Active Substance: SIMVASTATIN
     Indication: PRODUCT USED FOR UNKNOWN INDICATION
     Dosage: 1 DF, QN
     Route: 065
  7. PANTOMED [Concomitant]
     Indication: PRODUCT USED FOR UNKNOWN INDICATION
     Dosage: 1 DF, BID (IN MORNING AND IN NIGHT)
     Route: 065
  8. MORPHINE [Suspect]
     Active Substance: MORPHINE
     Indication: FACIAL PAIN
     Dosage: UNK
     Route: 065
  9. TRADONAL [Concomitant]
     Active Substance: TRAMADOL HYDROCHLORIDE
     Dosage: UNK (1 CO)
     Route: 065
  10. REDOMEX [Suspect]
     Active Substance: AMITRIPTYLINE HYDROCHLORIDE
     Indication: FACIAL PAIN
     Dosage: 1 DF
     Route: 065
     Dates: end: 201711
  11. EMCONCOR [Concomitant]
     Active Substance: BISOPROLOL FUMARATE
     Indication: PRODUCT USED FOR UNKNOWN INDICATION
     Dosage: 1 DF, QD (IN MORNING)
     Route: 065
  12. REBIF [Suspect]
     Active Substance: INTERFERON BETA-1A
     Indication: MULTIPLE SCLEROSIS
     Dosage: 44 UG
     Route: 058
     Dates: start: 20081103
  13. LIORESAL [Concomitant]
     Active Substance: BACLOFEN
     Indication: FACIAL PAIN
     Dosage: 10MG (UP TO 3CO / DAY, BUT NOW TAKES 0.5 CO IN THE MORNING, 0.5 CO IN THE AFTERNOON AND 1 CO IN THE
     Route: 065

REACTIONS (17)
  - Trigeminal neuralgia [Recovering/Resolving]
  - Dry mouth [Not Recovered/Not Resolved]
  - Multiple sclerosis [Unknown]
  - Injection site bruising [Unknown]
  - Incorrect route of product administration [Unknown]
  - Injection site erythema [Recovering/Resolving]
  - Hypertension [Not Recovered/Not Resolved]
  - Balance disorder [Not Recovered/Not Resolved]
  - Injection site pain [Recovering/Resolving]
  - Disturbance in attention [Not Recovered/Not Resolved]
  - Oesophagitis [Not Recovered/Not Resolved]
  - Somnolence [Unknown]
  - Blood cholesterol increased [Unknown]
  - Influenza like illness [Not Recovered/Not Resolved]
  - Memory impairment [Not Recovered/Not Resolved]
  - Neurovascular conflict [Recovering/Resolving]
  - Choking [Unknown]
